FAERS Safety Report 8826757 (Version 1)
Quarter: 2012Q4

REPORT INFORMATION
  Report Type: 
  Country: IN (occurrence: IN)
  Receive Date: 20121005
  Receipt Date: 20121005
  Transmission Date: 20130627
  Serious: Yes (Life-Threatening, Hospitalization)
  Sender: FDA-Public Use
  Company Number: IN-GLAXOSMITHKLINE-B0822632A

PATIENT
  Age: 65 Year
  Sex: Female

DRUGS (2)
  1. CEFUROXIME [Suspect]
     Indication: THERAPEUTIC PROCEDURE
     Dosage: 1.5G Single dose
     Route: 042
     Dates: start: 20120801, end: 20120801
  2. ANAESTHESIA (SPINAL) [Concomitant]

REACTIONS (6)
  - Anaphylactic reaction [Recovered/Resolved]
  - Bronchospasm [Recovered/Resolved]
  - Hypotension [Recovered/Resolved]
  - Oxygen saturation decreased [Recovered/Resolved]
  - Bradycardia [Recovered/Resolved]
  - Face oedema [Recovered/Resolved]
